FAERS Safety Report 9816394 (Version 1)
Quarter: 2014Q1

REPORT INFORMATION
  Report Type: Spontaneous
  Country: US (occurrence: US)
  Receive Date: 20140114
  Receipt Date: 20140114
  Transmission Date: 20141002
  Serious: Yes (Death)
  Sender: FDA-Public Use
  Company Number: US-CELGENEUS-163-20785-14011614

PATIENT
  Age: 17 Year
  Sex: Male

DRUGS (1)
  1. THALOMID [Suspect]
     Indication: SARCOIDOSIS
     Dosage: 100 MILLIGRAM
     Route: 048
     Dates: start: 201304, end: 2013

REACTIONS (1)
  - Death [Fatal]
